FAERS Safety Report 9968900 (Version 1)
Quarter: 2014Q1

REPORT INFORMATION
  Report Type: Spontaneous
  Country: US (occurrence: US)
  Receive Date: 20140306
  Receipt Date: 20140306
  Transmission Date: 20141002
  Serious: No
  Sender: FDA-Public Use
  Company Number: US-ABBVIE-13P-163-1145172-00

PATIENT
  Age: 37 Year
  Sex: Female
  Weight: 94.43 kg

DRUGS (6)
  1. HUMIRA [Suspect]
     Indication: PSORIASIS
     Dates: start: 20130729
  2. CYMBALTA [Concomitant]
     Indication: DEPRESSION
  3. FOLIC ACID [Concomitant]
     Indication: IMMUNE SYSTEM DISORDER
  4. SERTRALINE [Concomitant]
     Indication: EMOTIONAL DISORDER
  5. ADIPEX [Concomitant]
     Indication: DECREASED APPETITE
  6. PROMETHAZINE [Concomitant]
     Indication: VOMITING

REACTIONS (5)
  - Device malfunction [Recovered/Resolved]
  - Device malfunction [Recovered/Resolved]
  - Injection site haemorrhage [Recovered/Resolved]
  - Injection site bruising [Not Recovered/Not Resolved]
  - Nausea [Not Recovered/Not Resolved]
